FAERS Safety Report 6376421-7 (Version None)
Quarter: 2009Q3

REPORT INFORMATION
  Report Type: 
  Country: None (occurrence: None)
  Receive Date: 20090925
  Receipt Date: 20090922
  Transmission Date: 20100115
  Serious: No
  Sender: FDA-Public Use
  Company Number: US-JNJFOC-20090906754

PATIENT
  Age: 80 Year
  Sex: Female

DRUGS (2)
  1. FENTANYL TRANSDERMAL SYSTEM [Suspect]
     Indication: DRUG USE FOR UNKNOWN INDICATION
     Route: 062
  2. FENTANYL TRANSDERMAL SYSTEM [Concomitant]
     Route: 062

REACTIONS (1)
  - WRONG TECHNIQUE IN DRUG USAGE PROCESS [None]
